FAERS Safety Report 5629219-9 (Version None)
Quarter: 2008Q1

REPORT INFORMATION
  Report Type: 
  Country: None (occurrence: None)
  Receive Date: 20080217
  Receipt Date: 20070806
  Transmission Date: 20080703
  Serious: No
  Sender: FDA-Public Use
  Company Number: US-BAYER-US-2007-029550

PATIENT
  Age: 61 Year
  Sex: Female
  Weight: 72 kg

DRUGS (13)
  1. FINACEA [Suspect]
     Indication: ROSACEA
     Route: 061
     Dates: start: 20070731
  2. GLYBURIDE [Concomitant]
     Dosage: TOTAL DAILY DOSE: 5 MG  UNIT DOSE: 5 MG
  3. GLUCOPHAGE [Concomitant]
  4. SYNTHROID [Concomitant]
     Dosage: TOTAL DAILY DOSE: 100 MG  UNIT DOSE: 100 MG
  5. ENALAPRIL MALEATE [Concomitant]
     Dosage: TOTAL DAILY DOSE: 10 MG  UNIT DOSE: 10 MG
  6. EFFEXOR [Concomitant]
     Dosage: TOTAL DAILY DOSE: 150 MG  UNIT DOSE: 150 MG
  7. FLEXERIL [Concomitant]
     Dosage: TOTAL DAILY DOSE: 1 DF  UNIT DOSE: 1 DF
  8. AMBIEN [Concomitant]
     Dosage: TOTAL DAILY DOSE: 10 MG  UNIT DOSE: 10 MG
  9. ASPIRIN [Concomitant]
     Dosage: TOTAL DAILY DOSE: 325 MG  UNIT DOSE: 325 MG
  10. NEXIUM [Concomitant]
     Dosage: TOTAL DAILY DOSE: 40 MG  UNIT DOSE: 40 MG
  11. BYETTA [Concomitant]
     Dosage: UNIT DOSE: 250 ?G/ML
     Route: 050
  12. ERYTHROMYCIN [Concomitant]
     Indication: ROSACEA
     Dosage: TOTAL DAILY DOSE: 1000 MG  UNIT DOSE: 500 MG
  13. BONIVA [Concomitant]
     Dosage: TOTAL DAILY DOSE: 150 MG  UNIT DOSE: 150 MG

REACTIONS (1)
  - ROSACEA [None]
